FAERS Safety Report 8995276 (Version 1)
Quarter: 2012Q4

REPORT INFORMATION
  Report Type: Spontaneous
  Country: US (occurrence: None)
  Receive Date: 20121221
  Receipt Date: 20121221
  Transmission Date: 20130627
  Serious: Yes (Death)
  Sender: FDA-Public Use
  Company Number: PR-AE12-000590

PATIENT
  Sex: Female

DRUGS (1)
  1. BC HEADACHE POWDER [Suspect]
     Dosage: ORAL
     Route: 048

REACTIONS (2)
  - Death [None]
  - Ill-defined disorder [None]
